FAERS Safety Report 7539155-9 (Version None)
Quarter: 2011Q2

REPORT INFORMATION
  Report Type: 
  Country: None (occurrence: None)
  Receive Date: 20110610
  Receipt Date: 20040112
  Transmission Date: 20111010
  Serious: Yes (Death, Other)
  Sender: FDA-Public Use
  Company Number: PHFR2003GB02793

PATIENT
  Sex: Male

DRUGS (1)
  1. CLOZAPINE [Suspect]
     Indication: SCHIZOPHRENIA
     Route: 048
     Dates: start: 20001010

REACTIONS (9)
  - DIABETES MELLITUS [None]
  - THIRST [None]
  - POLYURIA [None]
  - BLOOD KETONE BODY INCREASED [None]
  - WEIGHT INCREASED [None]
  - ABDOMINAL PAIN UPPER [None]
  - DRUG LEVEL INCREASED [None]
  - DEATH [None]
  - OBESITY [None]
